FAERS Safety Report 10946712 (Version 1)
Quarter: 2015Q1

REPORT INFORMATION
  Report Type: Spontaneous
  Country: US (occurrence: None)
  Receive Date: 20150212
  Receipt Date: 20150212
  Transmission Date: 20150721
  Serious: No
  Sender: FDA-Public Use
  Company Number: TPA2011A00738

PATIENT
  Age: 57 Year
  Sex: Female
  Weight: 44.45 kg

DRUGS (6)
  1. ULORIC [Suspect]
     Active Substance: FEBUXOSTAT
     Indication: GOUT
     Route: 048
     Dates: start: 201102, end: 201102
  2. PREMARIN [Concomitant]
     Active Substance: ESTROGENS, CONJUGATED
  3. SODIUM TABLETS (SODIUM) [Concomitant]
  4. POTASSIUM [Concomitant]
     Active Substance: POTASSIUM
  5. FENOGLIDE (CHOLESTEROL AND TRIGLYCERIDE REDUCERS) [Concomitant]
  6. AMLORIDE [Concomitant]

REACTIONS (5)
  - Local swelling [None]
  - Pain in extremity [None]
  - Gout [None]
  - Adverse reaction [None]
  - Insomnia [None]

NARRATIVE: CASE EVENT DATE: 201102
